FAERS Safety Report 7492044-0 (Version None)
Quarter: 2011Q2

REPORT INFORMATION
  Report Type: 
  Country: None (occurrence: None)
  Receive Date: 20110519
  Receipt Date: 20110509
  Transmission Date: 20111010
  Serious: Yes (Hospitalization)
  Sender: FDA-Public Use
  Company Number: NL-TEVA-262447ISR

PATIENT
  Age: 75 Year
  Sex: Male
  Weight: 60 kg

DRUGS (8)
  1. FLUTICASONE PROPIONATE [Concomitant]
  2. CARBASALATE CALCIUM [Concomitant]
     Dosage: 100 MILLIGRAM;
     Route: 048
  3. OMEPRAZOLE [Concomitant]
  4. METOPROLOL TARTRATE [Suspect]
     Indication: HYPERTENSION
     Route: 048
  5. FLOXACILLIN SODIUM [Suspect]
     Dates: start: 20100101
  6. INFLUENZA VIRUS VACCINE POLYVALENT [Suspect]
     Dates: start: 20101109, end: 20101109
  7. AMLODIPINE MALEATE [Concomitant]
     Route: 048
  8. INFLUENZA VIRUS VACCINE POLYVALENT [Suspect]
     Dates: start: 20101109, end: 20101109

REACTIONS (1)
  - PSORIASIS [None]
